FAERS Safety Report 7864628-9 (Version None)
Quarter: 2011Q4

REPORT INFORMATION
  Report Type: 
  Country: None (occurrence: None)
  Receive Date: 20111028
  Receipt Date: 20111019
  Transmission Date: 20120403
  Serious: Yes (Hospitalization)
  Sender: FDA-Public Use
  Company Number: DE-ASTRAZENECA-2011SE62880

PATIENT
  Age: 770 Month
  Sex: Female

DRUGS (11)
  1. VANDETANIB [Suspect]
     Indication: THYROID CANCER
     Route: 048
     Dates: start: 20110804
  2. TINKTURA OPII [Concomitant]
     Indication: DIARRHOEA
     Dosage: AS REQUIRED
     Route: 048
     Dates: start: 20110802
  3. NOVALGIN [Concomitant]
     Indication: BONE PAIN
     Dosage: AS REQUIRED
     Route: 048
  4. BEPANTHEN [Concomitant]
     Indication: NASAL DRYNESS
     Dosage: AS REQUIRED
     Route: 045
     Dates: start: 20110810
  5. LEVOTHYROXINE SODIUM [Concomitant]
     Indication: HYPOTHYROIDISM
     Dosage: AS REQUIRED
     Route: 048
  6. NOVALGIN [Concomitant]
     Indication: METASTASES TO BONE
     Dosage: AS REQUIRED
     Route: 048
  7. CALCIUM CARBONATE [Concomitant]
     Indication: VITAMIN SUPPLEMENTATION
     Dosage: AS REQUIRED
     Route: 048
  8. NOVALGIN [Concomitant]
     Indication: PAIN IN EXTREMITY
     Dosage: AS REQUIRED
     Route: 048
  9. NOVALGIN [Concomitant]
     Indication: MUSCULOSKELETAL PAIN
     Dosage: AS REQUIRED
     Route: 048
  10. CALCIUM CARBONATE [Concomitant]
     Indication: MINERAL SUPPLEMENTATION
     Dosage: AS REQUIRED
     Route: 048
  11. AMPHO-MORANAL [Concomitant]
     Indication: STOMATITIS
     Dosage: AS REQUIRED
     Route: 048
     Dates: start: 20110810

REACTIONS (1)
  - GASTROENTERITIS [None]
